FAERS Safety Report 4314923-5 (Version None)
Quarter: 2004Q1

REPORT INFORMATION
  Report Type: 
  Country: None (occurrence: None)
  Receive Date: 20040310
  Receipt Date: 20040223
  Transmission Date: 20041129
  Serious: Yes (Hospitalization, Other)
  Sender: FDA-Public Use
  Company Number: WAES 0402USA01846

PATIENT
  Age: 73 Year
  Sex: Female
  Weight: 50 kg

DRUGS (5)
  1. FOSAMAX [Suspect]
     Indication: OSTEOPOROSIS
     Route: 048
     Dates: start: 20010101, end: 20040223
  2. CARVEDILOL [Concomitant]
     Indication: HYPERTENSION
  3. IRSOGLADINE MALEATE [Concomitant]
     Indication: GASTRIC ULCER
  4. IRSOGLADINE MALEATE [Concomitant]
     Indication: DUODENAL ULCER
  5. VERAPAMIL HYDROCHLORIDE [Concomitant]
     Indication: ATRIAL FIBRILLATION

REACTIONS (6)
  - ADVERSE EVENT [None]
  - CEREBRAL INFARCTION [None]
  - DUODENAL ULCER [None]
  - GASTRIC ULCER [None]
  - GASTRITIS [None]
  - PANCYTOPENIA [None]
